FAERS Safety Report 15157661 (Version 1)
Quarter: 2018Q3

REPORT INFORMATION
  Report Type: Spontaneous
  Country: US (occurrence: US)
  Receive Date: 20180620
  Receipt Date: 20180620
  Transmission Date: 20181010
  Serious: Yes (Hospitalization)
  Sender: FDA-Public Use
  Company Number: None

PATIENT
  Age: 67 Year
  Sex: Female

DRUGS (12)
  1. HUMIRA [Suspect]
     Active Substance: ADALIMUMAB
     Indication: PRODUCT USED FOR UNKNOWN INDICATION
     Route: 058
     Dates: start: 20180529
  2. AMLODIPINE [Concomitant]
     Active Substance: AMLODIPINE BESYLATE
  3. NEVANAC [Concomitant]
     Active Substance: NEPAFENAC
  4. TRIAMTERENE/HCTZ 75/50MG [Concomitant]
  5. BYSTOLIC [Concomitant]
     Active Substance: NEBIVOLOL HYDROCHLORIDE
  6. VITAMIN D 50,000 UNITS [Concomitant]
  7. DUREZOL [Concomitant]
     Active Substance: DIFLUPREDNATE
  8. HYDROXYCHLOROQUINE 200MG [Concomitant]
     Active Substance: HYDROXYCHLOROQUINE
  9. OXYBUTYNIN 5MG [Concomitant]
     Active Substance: OXYBUTYNIN
  10. IBANDRONATE 150MG [Concomitant]
  11. URSODIOL 500MG [Concomitant]
  12. HYDROXYZINE 25MG [Concomitant]

REACTIONS (2)
  - Retinal detachment [None]
  - Eye swelling [None]

NARRATIVE: CASE EVENT DATE: 20180612
